FAERS Safety Report 23897287 (Version 1)
Quarter: 2024Q2

REPORT INFORMATION
  Report Type: Spontaneous
  Country: US (occurrence: None)
  Receive Date: 20240524
  Receipt Date: 20240524
  Transmission Date: 20240715
  Serious: Yes (Hospitalization)
  Sender: FDA-Public Use
  Company Number: None

PATIENT
  Age: 62 Year
  Sex: Female

DRUGS (2)
  1. CUTAQUIG [Suspect]
     Active Substance: HUMAN IMMUNOGLOBULIN G
     Indication: Immunodeficiency common variable
     Dosage: 8G EVERY WEEK SUBCUTANEOUSLY?
     Route: 058
     Dates: start: 202303
  2. CUTAQUIG [Suspect]
     Active Substance: HUMAN IMMUNOGLOBULIN G
     Indication: Immunodeficiency common variable
     Dosage: 4G ONCE WEEKLY SUBCUTANEOUS
     Route: 058
     Dates: start: 202303

REACTIONS (3)
  - Joint swelling [None]
  - Arthritis [None]
  - Pelvic fracture [None]

NARRATIVE: CASE EVENT DATE: 20240510
